FAERS Safety Report 5384989-2 (Version None)
Quarter: 2007Q3

REPORT INFORMATION
  Report Type: 
  Country: None (occurrence: None)
  Receive Date: 20070709
  Receipt Date: 20070130
  Transmission Date: 20080115
  Serious: Yes (Other)
  Sender: FDA-Public Use
  Company Number: APP200700005

PATIENT
  Age: 40 Year
  Sex: Male
  Weight: 76.2 kg

DRUGS (8)
  1. IFOSFAMIDE [Suspect]
     Indication: BONE SARCOMA
     Dates: start: 20030101, end: 20040101
  2. CISPLATIN [Suspect]
     Indication: BONE SARCOMA
     Dates: start: 20030101, end: 20040101
  3. TAXOTERE [Suspect]
     Indication: METASTASES TO LUNG
     Dosage: (1 IN 1 WK)
     Dates: start: 20060101
  4. GEMZAR [Suspect]
     Indication: METASTASES TO LUNG
     Dates: start: 20060101
  5. OXYCONTIN [Concomitant]
  6. AMBIEN [Concomitant]
  7. ACETAMINOPHEN [Concomitant]
  8. HERBAL MEDICATIONS [Concomitant]

REACTIONS (1)
  - RENAL FAILURE CHRONIC [None]
